FAERS Safety Report 6590084-7 (Version None)
Quarter: 2010Q1

REPORT INFORMATION
  Report Type: 
  Country: None (occurrence: None)
  Receive Date: 20100219
  Receipt Date: 20100216
  Transmission Date: 20100710
  Serious: Yes (Death, Life-Threatening, Hospitalization)
  Sender: FDA-Public Use
  Company Number: PHEH2009US12474

PATIENT
  Sex: Female

DRUGS (2)
  1. EXJADE [Suspect]
     Indication: CHELATION THERAPY
     Dosage: 1500 MG, QD
     Route: 048
  2. EXJADE [Suspect]
     Indication: IRON METABOLISM DISORDER
     Dosage: 1875 MG, QD
     Route: 048

REACTIONS (7)
  - APPARENT DEATH [None]
  - DEATH [None]
  - GENERALISED OEDEMA [None]
  - MECHANICAL VENTILATION [None]
  - MULTI-ORGAN FAILURE [None]
  - PULMONARY HYPERTENSION [None]
  - SICKLE CELL ANAEMIA WITH CRISIS [None]
